FAERS Safety Report 16110826 (Version 5)
Quarter: 2019Q2

REPORT INFORMATION
  Report Type: Report from Study
  Country: US (occurrence: US)
  Receive Date: 20190325
  Receipt Date: 20190610
  Transmission Date: 20190711
  Serious: Yes (Hospitalization, Other)
  Sender: FDA-Public Use
  Company Number: PHEH2019US012569

PATIENT
  Sex: Male

DRUGS (1)
  1. ENTRESTO [Suspect]
     Active Substance: SACUBITRIL\VALSARTAN
     Indication: CARDIAC FAILURE CONGESTIVE
     Route: 048

REACTIONS (11)
  - Diabetes mellitus [Unknown]
  - Hypotension [Unknown]
  - Blood disorder [Unknown]
  - Blood glucose decreased [Unknown]
  - Device malfunction [Unknown]
  - Ventricular fibrillation [Unknown]
  - Tremor [Unknown]
  - Dizziness [Unknown]
  - Cardiac arrest [Unknown]
  - Dysgraphia [Unknown]
  - Decreased appetite [Unknown]
